FAERS Safety Report 24853066 (Version 1)
Quarter: 2025Q1

REPORT INFORMATION
  Report Type: Spontaneous
  Country: US (occurrence: US)
  Receive Date: 20250116
  Receipt Date: 20250116
  Transmission Date: 20250408
  Serious: Yes (Other)
  Sender: MALLINCKRODT
  Company Number: US-MALLINCKRODT-MNK202500136

PATIENT
  Sex: Female
  Weight: 270 kg

DRUGS (12)
  1. CORTICOTROPIN [Suspect]
     Active Substance: CORTICOTROPIN
     Indication: Systemic lupus erythematosus
     Route: 058
  2. PREDNISONE [Concomitant]
     Active Substance: PREDNISONE
  3. FLUOXETINE HYDROCHLORIDE [Concomitant]
     Active Substance: FLUOXETINE HYDROCHLORIDE
  4. ONDANSETRON HYDROCHLORIDE [Concomitant]
     Active Substance: ONDANSETRON HYDROCHLORIDE
  5. ARMODAFINIL [Concomitant]
     Active Substance: ARMODAFINIL
  6. HYDROMORPHONE [Concomitant]
     Active Substance: HYDROMORPHONE
  7. DULOXETINE HYDROCHLORIDE [Concomitant]
     Active Substance: DULOXETINE HYDROCHLORIDE
  8. CARVEDILOL [Concomitant]
     Active Substance: CARVEDILOL
  9. BUMETANIDE [Concomitant]
     Active Substance: BUMETANIDE
  10. AZITHROMYCIN [Concomitant]
     Active Substance: AZITHROMYCIN
  11. IMURAN [Concomitant]
     Active Substance: AZATHIOPRINE
  12. LEFLUNOMIDE [Concomitant]
     Active Substance: LEFLUNOMIDE

REACTIONS (7)
  - Cartilage injury [Unknown]
  - Systemic lupus erythematosus [Unknown]
  - Dizziness [Unknown]
  - Bone disorder [Unknown]
  - Nasal congestion [Unknown]
  - Nasopharyngitis [Unknown]
  - Decreased appetite [Unknown]
